FAERS Safety Report 16855759 (Version 1)
Quarter: 2019Q4

REPORT INFORMATION
  Report Type: Spontaneous
  Country: US (occurrence: US)
  Receive Date: 20190926
  Receipt Date: 20190926
  Transmission Date: 20200122
  Serious: Yes (Life-Threatening)
  Sender: FDA-Public Use
  Company Number: None

PATIENT
  Age: 8 Year
  Sex: Female
  Weight: 21 kg

DRUGS (11)
  1. CLONIDINE. [Concomitant]
     Active Substance: CLONIDINE
  2. GANCICLOVIR. [Concomitant]
     Active Substance: GANCICLOVIR
  3. LORAZEPAM. [Concomitant]
     Active Substance: LORAZEPAM
  4. HYDROMORPHONE [Concomitant]
     Active Substance: HYDROMORPHONE
  5. DRONABINOL. [Concomitant]
     Active Substance: DRONABINOL
  6. AMLODIPINE [Concomitant]
     Active Substance: AMLODIPINE BESYLATE
  7. RUXOLITINIB [Concomitant]
     Active Substance: RUXOLITINIB
  8. CYCLOSPORINE. [Concomitant]
     Active Substance: CYCLOSPORINE
  9. PANTOPRAZOLE [Concomitant]
     Active Substance: PANTOPRAZOLE
  10. METOCLOPRAMIDE. [Concomitant]
     Active Substance: METOCLOPRAMIDE
  11. ECULIZUMAB [Suspect]
     Active Substance: ECULIZUMAB
     Indication: PRODUCT USED FOR UNKNOWN INDICATION
     Dosage: ?          OTHER FREQUENCY:X1;?
     Route: 042
     Dates: start: 20190917, end: 20190917

REACTIONS (3)
  - Swollen tongue [None]
  - Swelling face [None]
  - Lip swelling [None]

NARRATIVE: CASE EVENT DATE: 20190917
